FAERS Safety Report 7113133-6 (Version None)
Quarter: 2010Q4

REPORT INFORMATION
  Report Type: 
  Country: None (occurrence: None)
  Receive Date: 20101119
  Receipt Date: 20101109
  Transmission Date: 20110411
  Serious: Yes (Hospitalization)
  Sender: FDA-Public Use
  Company Number: US-JNJFOC-20101104775

PATIENT
  Sex: Female
  Weight: 44.5 kg

DRUGS (8)
  1. REMICADE [Suspect]
     Indication: CROHN'S DISEASE
     Route: 042
  2. PREDNISONE [Concomitant]
     Route: 048
  3. 6-MERCAPTOPURINE [Concomitant]
  4. ANTIBIOTICS [Concomitant]
     Indication: INFLAMMATORY BOWEL DISEASE
  5. PROBIOTICS [Concomitant]
  6. GROWTH HORMONE [Concomitant]
  7. CORTICOSTEROIDS [Concomitant]
     Route: 054
  8. METHOTREXATE [Concomitant]

REACTIONS (1)
  - VARICELLA [None]
